FAERS Safety Report 5488815-2 (Version None)
Quarter: 2007Q4

REPORT INFORMATION
  Report Type: 
  Country: None (occurrence: None)
  Receive Date: 20071016
  Receipt Date: 20071002
  Transmission Date: 20080405
  Serious: Yes (Other)
  Sender: FDA-Public Use
  Company Number: 2007JP004602

PATIENT
  Sex: Female

DRUGS (8)
  1. FUNGUARD(MICAFUNGIN) INJECTION [Suspect]
     Dosage: IV DRIP
     Route: 041
  2. INSULIN [Concomitant]
  3. HEPARIN FORMULATION [Concomitant]
  4. AMPHOTERICIN B FORMULATION [Concomitant]
  5. DOPAMINE (DOPAMINE) FORMULATION [Concomitant]
  6. DOBTAMINE (DOBUTAMINE) FORMULATION UNKNOWN [Concomitant]
  7. STEROID FORMULATION UNKNOWN [Concomitant]
  8. SIVELESTAT (SIVELESTAT) FORMULATION UNKNOWN [Concomitant]

REACTIONS (3)
  - DUODENAL ULCER HAEMORRHAGE [None]
  - HEPARIN-INDUCED THROMBOCYTOPENIA [None]
  - MENTAL DISORDER [None]
